FAERS Safety Report 4803339-0 (Version None)
Quarter: 2005Q4

REPORT INFORMATION
  Report Type: 
  Country: None (occurrence: None)
  Receive Date: 20051013
  Receipt Date: 20050923
  Transmission Date: 20060501
  Serious: Yes (Hospitalization)
  Sender: FDA-Public Use
  Company Number: TRP_0461_2005

PATIENT
  Age: 49 Year
  Sex: Male
  Weight: 90.7194 kg

DRUGS (5)
  1. RIBASPHERE [Suspect]
     Indication: HEPATITIS C
     Dosage: DF, PO
     Route: 048
     Dates: start: 20050325
  2. PEG- INTRON/PEGINTERFERON ALFA-2B/SCHERING-PLOUGH /REDIPEN [Suspect]
     Indication: HEPATITIS C
     Dosage: DF, SC
     Route: 058
     Dates: start: 20050325
  3. PREVACID [Concomitant]
  4. AMBIEN [Concomitant]
  5. HYDROCODONE [Concomitant]

REACTIONS (8)
  - BURNING SENSATION [None]
  - CRYING [None]
  - DEPRESSION [None]
  - DYSPNOEA [None]
  - FEELING ABNORMAL [None]
  - HEADACHE [None]
  - INCORRECT DOSE ADMINISTERED [None]
  - WRONG TECHNIQUE IN DRUG USAGE PROCESS [None]
